FAERS Safety Report 9820179 (Version 1)
Quarter: 2013Q4

REPORT INFORMATION
  Report Type: Spontaneous
  Country: US (occurrence: None)
  Receive Date: 20131023
  Receipt Date: 20131023
  Transmission Date: 20140711
  Serious: Yes (Hospitalization)
  Sender: FDA-Public Use
  Company Number: AE-2199

PATIENT
  Age: 58 Year
  Sex: Female

DRUGS (1)
  1. APAP [Suspect]
     Indication: PAIN
     Route: 048

REACTIONS (1)
  - Unevaluable event [None]
